FAERS Safety Report 19154488 (Version 3)
Quarter: 2021Q2

REPORT INFORMATION
  Report Type: Report from Study
  Country: BE (occurrence: BE)
  Receive Date: 20210419
  Receipt Date: 20210610
  Transmission Date: 20210717
  Serious: Yes (Other)
  Sender: FDA-Public Use
  Company Number: BE-PFIZER INC-2021419419

PATIENT
  Age: 59 Year
  Sex: Male
  Weight: 73 kg

DRUGS (10)
  1. AVELUMAB [Suspect]
     Active Substance: AVELUMAB
     Dosage: 690 MG, CYCLIC (ONCE IN 2 WEEKS)
     Route: 042
     Dates: start: 20210324
  2. CISPLATIN. [Suspect]
     Active Substance: CISPLATIN
     Indication: BLADDER CANCER
     Dosage: 129.11 MG, CYCLIC (ONCE IN 2 WEEKS)
     Route: 042
     Dates: start: 20210210
  3. METHOTREXATE SODIUM. [Suspect]
     Active Substance: METHOTREXATE SODIUM
     Indication: BLADDER CANCER
     Dosage: 55.33 MG, CYCLIC (ONCE IN 2 WEEKS)
     Route: 042
     Dates: start: 20210209
  4. METHOTREXATE SODIUM. [Suspect]
     Active Substance: METHOTREXATE SODIUM
     Dosage: 55.33 MG, CYCLIC (ONCE IN 2 WEEKS)
     Route: 042
     Dates: start: 20210323
  5. DOXORUBICIN HCL [Suspect]
     Active Substance: DOXORUBICIN HYDROCHLORIDE
     Dosage: 55.33 MG, CYCLIC (ONCE IN 2 WEEKS)
     Route: 042
     Dates: start: 20210324
  6. AVELUMAB [Suspect]
     Active Substance: AVELUMAB
     Indication: BLADDER CANCER
     Dosage: 690 MG, CYCLIC (ONCE IN 2 WEEKS)
     Route: 042
     Dates: start: 20210210
  7. CISPLATIN. [Suspect]
     Active Substance: CISPLATIN
     Dosage: 129.11 MG, CYCLIC (ONCE IN 2 WEEKS)
     Route: 042
     Dates: start: 20210324
  8. DOXORUBICIN HCL [Suspect]
     Active Substance: DOXORUBICIN HYDROCHLORIDE
     Indication: BLADDER CANCER
     Dosage: 55.33 MG, CYCLIC (ONCE IN 2 WEEKS)
     Route: 042
     Dates: start: 20210210
  9. VINBLASTINE [Suspect]
     Active Substance: VINBLASTINE
     Indication: BLADDER CANCER
     Dosage: 5.53 MG, CYCLIC (ONCE IN 2 WEEKS)
     Route: 042
     Dates: start: 20210210
  10. VINBLASTINE [Suspect]
     Active Substance: VINBLASTINE
     Dosage: 5.53 MG, CYCLIC (ONCE IN 2 WEEKS)
     Route: 042
     Dates: start: 20210324

REACTIONS (3)
  - Thrombocytopenia [Recovered/Resolved]
  - Anaemia [Not Recovered/Not Resolved]
  - Neutropenia [Recovered/Resolved]

NARRATIVE: CASE EVENT DATE: 20210403
